FAERS Safety Report 7010866-7 (Version None)
Quarter: 2010Q3

REPORT INFORMATION
  Report Type: 
  Country: None (occurrence: None)
  Receive Date: 20100923
  Receipt Date: 20100923
  Transmission Date: 20110219
  Serious: Yes (Life-Threatening, Disabling)
  Sender: FDA-Public Use
  Company Number: None

PATIENT
  Sex: Male
  Weight: 92.9874 kg

DRUGS (1)
  1. ACTOS [Suspect]
     Dosage: 30 MG ONE A DAY

REACTIONS (2)
  - BLADDER CANCER [None]
  - HAEMATURIA [None]
